FAERS Safety Report 14739663 (Version 3)
Quarter: 2018Q2

REPORT INFORMATION
  Report Type: Report from Study
  Country: US (occurrence: US)
  Receive Date: 20180410
  Receipt Date: 20180615
  Transmission Date: 20180711
  Serious: Yes (Other)
  Sender: FDA-Public Use
  Company Number: US-GILEAD-2018-0330854

PATIENT
  Age: 54 Year
  Sex: Female
  Weight: 101.13 kg

DRUGS (30)
  1. ADCIRCA [Concomitant]
     Active Substance: TADALAFIL
     Indication: PULMONARY ARTERIAL HYPERTENSION
     Dosage: 40 MG, QD
     Dates: start: 20120201
  2. OXYGEN. [Concomitant]
     Active Substance: OXYGEN
  3. MYCOSTATIN [Concomitant]
     Active Substance: NYSTATIN
  4. ACIPHEX [Concomitant]
     Active Substance: RABEPRAZOLE SODIUM
  5. DESYREL [Concomitant]
     Active Substance: TRAZODONE HYDROCHLORIDE
  6. TYLENOL ARTHRITIS PAIN [Concomitant]
     Active Substance: ACETAMINOPHEN
  7. VENTOLIN HFA [Concomitant]
     Active Substance: ALBUTEROL SULFATE
  8. LINZESS [Concomitant]
     Active Substance: LINACLOTIDE
     Indication: INTESTINAL OBSTRUCTION
     Dates: start: 201801
  9. SALAGEN [Concomitant]
     Active Substance: PILOCARPINE HYDROCHLORIDE
  10. KENALOG [Concomitant]
     Active Substance: TRIAMCINOLONE ACETONIDE
  11. DOLOPHINE [Concomitant]
     Active Substance: METHADONE HYDROCHLORIDE
  12. NEURONTIN [Concomitant]
     Active Substance: GABAPENTIN
  13. MUCINEX [Concomitant]
     Active Substance: GUAIFENESIN
  14. SYNTHROID [Concomitant]
     Active Substance: LEVOTHYROXINE SODIUM
  15. PROVIGIL [Concomitant]
     Active Substance: MODAFINIL
  16. EFFEXOR [Concomitant]
     Active Substance: VENLAFAXINE HYDROCHLORIDE
  17. AMBRISENTAN [Suspect]
     Active Substance: AMBRISENTAN
     Indication: PULMONARY ARTERIAL HYPERTENSION
     Dosage: 10 MG, QD
     Route: 048
     Dates: start: 20120206
  18. PROVENTIL HFA [Concomitant]
     Active Substance: ALBUTEROL SULFATE
  19. XANAX [Concomitant]
     Active Substance: ALPRAZOLAM
  20. FLONASE                            /00908302/ [Concomitant]
     Active Substance: MOMETASONE FUROATE
  21. MAGNESIUM [Concomitant]
     Active Substance: MAGNESIUM
  22. VITAMIN D3 [Concomitant]
     Active Substance: CHOLECALCIFEROL
  23. BENADRYL [Concomitant]
     Active Substance: DIPHENHYDRAMINE HYDROCHLORIDE
  24. KLOR-CON [Concomitant]
     Active Substance: POTASSIUM CHLORIDE
  25. ZYRTEC [Concomitant]
     Active Substance: CETIRIZINE HYDROCHLORIDE
  26. DIFLUCAN [Concomitant]
     Active Substance: FLUCONAZOLE
  27. LASIX [Concomitant]
     Active Substance: FUROSEMIDE
  28. VENOFER [Concomitant]
     Active Substance: IRON SUCROSE
  29. ZOFRAN [Concomitant]
     Active Substance: ONDANSETRON HYDROCHLORIDE
  30. RITUXAN [Concomitant]
     Active Substance: RITUXIMAB

REACTIONS (3)
  - Continuous positive airway pressure [Not Recovered/Not Resolved]
  - Small intestinal obstruction [Unknown]
  - Intentional product use issue [Recovered/Resolved]

NARRATIVE: CASE EVENT DATE: 201801
